FAERS Safety Report 20037211 (Version 1)
Quarter: 2021Q4

REPORT INFORMATION
  Report Type: Spontaneous
  Country: US (occurrence: None)
  Receive Date: 20211105
  Receipt Date: 20211105
  Transmission Date: 20220303
  Serious: Yes (Other)
  Sender: FDA-Public Use
  Company Number: 2021A792757

PATIENT
  Sex: Female

DRUGS (2)
  1. TAGRISSO [Suspect]
     Active Substance: OSIMERTINIB
     Route: 048
  2. FENTANYL [Suspect]
     Active Substance: FENTANYL
     Route: 065

REACTIONS (5)
  - Neoplasm malignant [Unknown]
  - Central nervous system lesion [Unknown]
  - Illness [Unknown]
  - Unevaluable event [Unknown]
  - Back pain [Unknown]
